FAERS Safety Report 7629277-6 (Version None)
Quarter: 2011Q3

REPORT INFORMATION
  Report Type: 
  Country: None (occurrence: None)
  Receive Date: 20110715
  Receipt Date: 20110629
  Transmission Date: 20111222
  Serious: Yes (Hospitalization)
  Sender: FDA-Public Use
  Company Number: 2011MA007770

PATIENT
  Age: 79 Year
  Sex: Male

DRUGS (11)
  1. INDAPAMIDE [Concomitant]
  2. SULFATRIM [Suspect]
     Indication: CELLULITIS
     Dosage: 1600 MG, QD
  3. PERINDOPRIL [Concomitant]
  4. TRAZODONE HCL [Concomitant]
  5. SIMVASTATIN [Concomitant]
  6. ALFUZOSIN HCL [Concomitant]
  7. TORSEMIDE [Concomitant]
  8. ACENOCOURMAROL [Concomitant]
  9. AMIODARONE HCL [Concomitant]
  10. ESOMEPRAZOLE MAGNESIUM [Concomitant]
  11. CETIRIZINE HCL [Concomitant]

REACTIONS (10)
  - CELLULITIS [None]
  - SEPTIC SHOCK [None]
  - COGNITIVE DISORDER [None]
  - GENERAL PHYSICAL HEALTH DETERIORATION [None]
  - RENAL FAILURE [None]
  - HYPOGLYCAEMIA [None]
  - MALAISE [None]
  - FALL [None]
  - ESCHAR [None]
  - CONDITION AGGRAVATED [None]
